FAERS Safety Report 4316835-X (Version None)
Quarter: 2004Q1

REPORT INFORMATION
  Report Type: 
  Country: None (occurrence: None)
  Receive Date: 20040309
  Receipt Date: 20031124
  Transmission Date: 20041129
  Serious: Yes (Other)
  Sender: FDA-Public Use
  Company Number: A03200302833

PATIENT

DRUGS (1)
  1. ELOXATIN [Suspect]
     Dosage: INTRAVENOUS NOS
     Route: 042

REACTIONS (1)
  - THROMBOCYTOPENIA [None]
